FAERS Safety Report 4820852-0 (Version None)
Quarter: 2005Q4

REPORT INFORMATION
  Report Type: 
  Country: None (occurrence: None)
  Receive Date: 20051104
  Receipt Date: 20051027
  Transmission Date: 20060501
  Serious: Yes (Other)
  Sender: FDA-Public Use
  Company Number: US-ABBOTT-05P-163-0316119-00

PATIENT
  Age: 71 Year
  Sex: Male

DRUGS (4)
  1. CYCLOSPORIN 100MG [Suspect]
     Indication: IMMUNOSUPPRESSANT DRUG THERAPY
  2. CYCLOSPORIN 100MG [Suspect]
     Dosage: DECREASED
  3. AZATHIOPRINE [Suspect]
     Indication: IMMUNOSUPPRESSANT DRUG THERAPY
  4. PREDNISONE [Concomitant]
     Indication: IMMUNOSUPPRESSION
     Dosage: EVERY OTHER DAY

REACTIONS (4)
  - BLOOD IMMUNOGLOBULIN G INCREASED [None]
  - LYMPHOPROLIFERATIVE DISORDER [None]
  - NODULE [None]
  - PLASMACYTOMA [None]
